FAERS Safety Report 18980787 (Version 1)
Quarter: 2021Q1

REPORT INFORMATION
  Report Type: Spontaneous
  Country: PL (occurrence: PL)
  Receive Date: 20210308
  Receipt Date: 20210308
  Transmission Date: 20210420
  Serious: Yes (Hospitalization)
  Sender: FDA-Public Use
  Company Number: PL-PFIZER INC-2021212937

PATIENT
  Age: 20 Year
  Sex: Female
  Weight: 70 kg

DRUGS (2)
  1. CLINDAMYCIN. [Suspect]
     Active Substance: CLINDAMYCIN
     Dosage: 600 MG, 1X/DAY
     Route: 048
     Dates: start: 20180904, end: 20180913
  2. FEBROFEN [Suspect]
     Active Substance: KETOPROFEN
     Dosage: 200 MG, 1X/DAY
     Route: 048
     Dates: start: 20180904, end: 20180913

REACTIONS (6)
  - Skin burning sensation [Recovering/Resolving]
  - Skin lesion [Recovering/Resolving]
  - Lip swelling [Recovering/Resolving]
  - Swelling face [Recovering/Resolving]
  - Pruritus [Recovering/Resolving]
  - Erythema [Recovering/Resolving]

NARRATIVE: CASE EVENT DATE: 20180913
